FAERS Safety Report 25866574 (Version 1)
Quarter: 2025Q3

REPORT INFORMATION
  Report Type: Spontaneous
  Country: US (occurrence: US)
  Receive Date: 20250930
  Receipt Date: 20250930
  Transmission Date: 20251021
  Serious: Yes (Other)
  Sender: EVOKE PHARMA, INC.
  Company Number: US-EVOKE PHARMA, INC.-2025EVO000114

PATIENT

DRUGS (1)
  1. GIMOTI [Suspect]
     Active Substance: METOCLOPRAMIDE HYDROCHLORIDE
     Indication: Product used for unknown indication
     Route: 045
     Dates: start: 20250529

REACTIONS (2)
  - Tachycardia [Unknown]
  - Dyspnoea [Unknown]
